FAERS Safety Report 14406046 (Version 2)
Quarter: 2018Q1

REPORT INFORMATION
  Report Type: Spontaneous
  Country: DE (occurrence: DE)
  Receive Date: 20180118
  Receipt Date: 20180209
  Transmission Date: 20180509
  Serious: No
  Sender: FDA-Public Use
  Company Number: DE-009507513-1602DEU008894

PATIENT
  Sex: Female

DRUGS (1)
  1. NUVARING [Suspect]
     Active Substance: ETHINYL ESTRADIOL\ETONOGESTREL
     Indication: CONTRACEPTION
     Dosage: 1 VAGINAL RING, UNK
     Route: 067

REACTIONS (4)
  - Circumstance or information capable of leading to medication error [Unknown]
  - Adverse event [Unknown]
  - Inappropriate schedule of drug administration [Unknown]
  - Maternal exposure before pregnancy [Unknown]
